FAERS Safety Report 6596344-8 (Version None)
Quarter: 2010Q1

REPORT INFORMATION
  Report Type: 
  Country: None (occurrence: None)
  Receive Date: 20100223
  Receipt Date: 20100215
  Transmission Date: 20100710
  Serious: Yes (Hospitalization)
  Sender: FDA-Public Use
  Company Number: US-ELI_LILLY_AND_COMPANY-US201002004476

PATIENT
  Sex: Female

DRUGS (2)
  1. HUMALOG MIX 75/25 [Suspect]
     Indication: DIABETES MELLITUS
     Dosage: 24 U, EACH MORNING
     Dates: start: 20050101
  2. HUMALOG MIX 75/25 [Suspect]
     Dosage: 19 U, EACH EVENING

REACTIONS (9)
  - ANXIETY [None]
  - BRADYPHRENIA [None]
  - CEREBROVASCULAR ACCIDENT [None]
  - CONFUSIONAL STATE [None]
  - FRUSTRATION [None]
  - GRIP STRENGTH DECREASED [None]
  - HEMIPLEGIA [None]
  - MUSCULAR WEAKNESS [None]
  - SPEECH DISORDER [None]
